FAERS Safety Report 24054709 (Version 1)
Quarter: 2024Q3

REPORT INFORMATION
  Report Type: Spontaneous
  Country: TW (occurrence: TW)
  Receive Date: 20240705
  Receipt Date: 20240705
  Transmission Date: 20241017
  Serious: Yes (Death, Other)
  Sender: AMGEN
  Company Number: TW-AMGEN-TWNSP2024132897

PATIENT
  Age: 12 Year
  Sex: Female

DRUGS (1)
  1. BLINCYTO [Suspect]
     Active Substance: BLINATUMOMAB
     Indication: B-cell type acute leukaemia
     Dosage: 15 MICROGRAM/SQ. METER, QD
     Route: 042

REACTIONS (2)
  - Acute lymphocytic leukaemia recurrent [Fatal]
  - Cytokine release syndrome [Recovered/Resolved]
